FAERS Safety Report 10761708 (Version 2)
Quarter: 2015Q1

REPORT INFORMATION
  Report Type: Spontaneous
  Country: US (occurrence: US)
  Receive Date: 20150204
  Receipt Date: 20150225
  Transmission Date: 20150721
  Serious: Yes (Other)
  Sender: FDA-Public Use
  Company Number: US-ASTRAZENECA-2013SE86606

PATIENT
  Age: 633 Month
  Sex: Male

DRUGS (24)
  1. BYETTA [Suspect]
     Active Substance: EXENATIDE
     Route: 065
     Dates: start: 2010
  2. GLIPIZIDE XL [Concomitant]
     Active Substance: GLIPIZIDE
     Dosage: 5 MG,UNKNOWN
     Dates: start: 20080529
  3. METFORMIN [Concomitant]
     Active Substance: METFORMIN HYDROCHLORIDE
     Dates: start: 20060720
  4. SULFAMETHOXAZOLE-TRIMETHOPRIM (SMZ) [Concomitant]
     Active Substance: SULFAMETHOXAZOLE\TRIMETHOPRIM
     Dosage: 800-160,UNKNOWN
     Dates: start: 20101108
  5. BYETTA [Suspect]
     Active Substance: EXENATIDE
     Dosage: 5 MCG,UNKNOWN
     Route: 065
     Dates: start: 20071228
  6. VITAMIN D [Concomitant]
     Active Substance: CHOLECALCIFEROL
     Dosage: 500000UNT
     Dates: start: 20120418
  7. JANUVIA [Suspect]
     Active Substance: SITAGLIPTIN PHOSPHATE
     Dosage: UNK
     Route: 065
     Dates: start: 201101
  8. DYNACIRC [Concomitant]
     Active Substance: ISRADIPINE
     Dates: start: 20050416
  9. LISINOP/HCTZ [Concomitant]
     Dosage: 10-12.5,UNKNOWN
     Dates: start: 20091117
  10. BYDUREON [Concomitant]
     Active Substance: EXENATIDE
     Dates: start: 20121021
  11. VYTORIN [Concomitant]
     Active Substance: EZETIMIBE\SIMVASTATIN
     Dosage: 10-20MG, UNKNOWN
     Dates: start: 20050416
  12. VIAGRA [Concomitant]
     Active Substance: SILDENAFIL CITRATE
     Dates: start: 20091120
  13. EFFIENT [Concomitant]
     Active Substance: PRASUGREL HYDROCHLORIDE
     Dates: start: 20120510
  14. GLYB/METFORM [Concomitant]
     Dosage: 2.5/500,UNKNOWN
     Dates: start: 20071112
  15. METOPROLOL TAR [Concomitant]
     Active Substance: METOPROLOL TARTRATE
     Dates: start: 20120430
  16. JANUVIA [Suspect]
     Active Substance: SITAGLIPTIN PHOSPHATE
     Route: 065
     Dates: start: 20091117
  17. JANUVIA [Suspect]
     Active Substance: SITAGLIPTIN PHOSPHATE
     Dosage: 50 DAILY
     Route: 065
  18. CARTIA XT [Concomitant]
     Active Substance: DILTIAZEM HYDROCHLORIDE
     Dates: start: 20060323
  19. LISINOPRIL. [Concomitant]
     Active Substance: LISINOPRIL
     Dates: start: 20120430
  20. BYETTA [Suspect]
     Active Substance: EXENATIDE
     Route: 065
     Dates: start: 19940101
  21. TRIAM/HCTZ CAP [Concomitant]
     Dosage: CAP 37.5.25
  22. NIASPAN [Concomitant]
     Active Substance: NIACIN
     Dates: start: 20051017
  23. ACTOS [Concomitant]
     Active Substance: PIOGLITAZONE HYDROCHLORIDE
     Dates: start: 20060515
  24. BUPROPION [Concomitant]
     Active Substance: BUPROPION
     Dosage: 150 MG,UNKNOWN
     Dates: start: 20080502

REACTIONS (2)
  - Papillary thyroid cancer [Unknown]
  - Pancreatic carcinoma [Unknown]

NARRATIVE: CASE EVENT DATE: 201111
